FAERS Safety Report 12531964 (Version 2)
Quarter: 2016Q4

REPORT INFORMATION
  Report Type: Spontaneous
  Country: US (occurrence: US)
  Receive Date: 20160706
  Receipt Date: 20161027
  Transmission Date: 20170207
  Serious: Yes (Other)
  Sender: FDA-Public Use
  Company Number: US-ELI_LILLY_AND_COMPANY-US201606011096

PATIENT
  Sex: Female

DRUGS (2)
  1. TALTZ [Suspect]
     Active Substance: IXEKIZUMAB
     Indication: PSORIASIS
     Dosage: UNK UNK, UNKNOWN
     Route: 065
     Dates: start: 20160626, end: 20160626
  2. CLOBETASOL [Concomitant]
     Active Substance: CLOBETASOL

REACTIONS (4)
  - Injection site mass [Unknown]
  - Injection site warmth [Unknown]
  - Lymphadenopathy [Unknown]
  - Urticaria [Unknown]
